FAERS Safety Report 15522439 (Version 1)
Quarter: 2018Q4

REPORT INFORMATION
  Report Type: Spontaneous
  Country: US (occurrence: US)
  Receive Date: 20181012
  Receipt Date: 20181012
  Transmission Date: 20190205
  Serious: Yes (Hospitalization)
  Sender: FDA-Public Use
  Company Number: None

PATIENT
  Age: 68 Year
  Sex: Female
  Weight: 65 kg

DRUGS (1)
  1. NIVOLUMAB [Suspect]
     Active Substance: NIVOLUMAB
     Indication: CHOLANGIOCARCINOMA
     Route: 040
     Dates: start: 20180914, end: 20181001

REACTIONS (5)
  - Hypotension [None]
  - Hypoglycaemia [None]
  - Abdominal pain [None]
  - Unresponsive to stimuli [None]
  - Enteritis [None]

NARRATIVE: CASE EVENT DATE: 20181011
